FAERS Safety Report 5968554-1 (Version None)
Quarter: 2008Q4

REPORT INFORMATION
  Report Type: 
  Country: None (occurrence: None)
  Receive Date: 20081126
  Receipt Date: 20081120
  Transmission Date: 20090506
  Serious: Yes (Life-Threatening, Hospitalization)
  Sender: FDA-Public Use
  Company Number: US-TEVA-178121USA

PATIENT
  Sex: Female

DRUGS (4)
  1. AMOXICILLIN 250 MG + 500 MG CAPSULES [Suspect]
     Route: 048
     Dates: start: 20080914
  2. ROPINIROLE HYDROCHLORIDE [Interacting]
     Indication: PARKINSON'S DISEASE
  3. AMANTADINE HCL [Concomitant]
  4. RASAGILINE MESYLATE [Concomitant]

REACTIONS (4)
  - BLOOD PRESSURE DECREASED [None]
  - DRUG INTERACTION [None]
  - DYSPNOEA [None]
  - ERYTHEMA [None]
